FAERS Safety Report 11532960 (Version 3)
Quarter: 2025Q4

REPORT INFORMATION
  Report Type: Report from Study
  Country: US (occurrence: US)
  Receive Date: 20150921
  Receipt Date: 20251009
  Transmission Date: 20260118
  Serious: Yes (Other)
  Sender: TAKEDA
  Company Number: US-BAXALTA-2015BLT001781

PATIENT
  Age: 68 Year
  Sex: Female

DRUGS (2)
  1. HUMAN IMMUNOGLOBULIN G\HYALURONIDASE RECOMBINANT HUMAN [Suspect]
     Active Substance: HUMAN IMMUNOGLOBULIN G\HYALURONIDASE (HUMAN RECOMBINANT)
     Indication: Primary immunodeficiency syndrome
     Dosage: 60 GRAM, MONTHLY
  2. HUMAN IMMUNOGLOBULIN G\HYALURONIDASE RECOMBINANT HUMAN [Suspect]
     Active Substance: HUMAN IMMUNOGLOBULIN G\HYALURONIDASE (HUMAN RECOMBINANT)
     Indication: Immunodeficiency common variable
     Dosage: UNK

REACTIONS (5)
  - Sinusitis [Recovered/Resolved]
  - Pharyngitis streptococcal [Unknown]
  - Feeling abnormal [Unknown]
  - Malaise [Unknown]
  - Dysphonia [Unknown]

NARRATIVE: CASE EVENT DATE: 20250729
